FAERS Safety Report 9296537 (Version 1)
Quarter: 2013Q2

REPORT INFORMATION
  Report Type: Spontaneous
  Country: US (occurrence: US)
  Receive Date: 20130517
  Receipt Date: 20130517
  Transmission Date: 20140414
  Serious: Yes (Other)
  Sender: FDA-Public Use
  Company Number: US-ELI_LILLY_AND_COMPANY-US201305004125

PATIENT
  Age: 68 Year
  Sex: Female
  Weight: 59 kg

DRUGS (2)
  1. HUMALOG LISPRO [Suspect]
     Route: 058
  2. NOVOLOG [Concomitant]

REACTIONS (5)
  - Blood glucose increased [Unknown]
  - Paraesthesia [Unknown]
  - Dysarthria [Unknown]
  - Neuropathy peripheral [Unknown]
  - Autonomic neuropathy [Unknown]
